FAERS Safety Report 10077045 (Version 1)
Quarter: 2014Q2

REPORT INFORMATION
  Report Type: Spontaneous
  Country: IN (occurrence: IN)
  Receive Date: 20140414
  Receipt Date: 20140414
  Transmission Date: 20141212
  Serious: Yes (Other)
  Sender: FDA-Public Use
  Company Number: IN-009507513-1404IND006893

PATIENT
  Sex: Female
  Weight: 84 kg

DRUGS (1)
  1. JANUMET [Suspect]
     Indication: DIABETES MELLITUS
     Dosage: 50/500 MG, 2X/DAY
     Route: 048

REACTIONS (2)
  - Skin discolouration [Recovered/Resolved]
  - Weight increased [Not Recovered/Not Resolved]
